FAERS Safety Report 4610672-4 (Version None)
Quarter: 2005Q2

REPORT INFORMATION
  Report Type: 
  Country: None (occurrence: None)
  Receive Date: 20050301
  Receipt Date: 20041206
  Transmission Date: 20051028
  Serious: No
  Sender: FDA-Public Use
  Company Number: WAES 0412USA00685

PATIENT
  Age: 63 Year
  Sex: Female

DRUGS (4)
  1. ZETIA [Suspect]
     Indication: HYPERCHOLESTEROLAEMIA
     Dosage: 10 MG/DAILY/PO
     Route: 048
     Dates: start: 20040401, end: 20040701
  2. QVAR 40 [Concomitant]
  3. SEREVENT [Concomitant]
  4. SYNTHROID [Concomitant]

REACTIONS (1)
  - ALOPECIA [None]
